FAERS Safety Report 6265051-3 (Version None)
Quarter: 2009Q3

REPORT INFORMATION
  Report Type: 
  Country: None (occurrence: None)
  Receive Date: 20090713
  Receipt Date: 20090629
  Transmission Date: 20100115
  Serious: Yes (Hospitalization, Other)
  Sender: FDA-Public Use
  Company Number: JP-PFIZER INC-2009234583

PATIENT
  Age: 87 Year

DRUGS (3)
  1. LINEZOLID [Suspect]
     Indication: STAPHYLOCOCCAL INFECTION
     Dosage: FREQUENCY: 2X/DAY,
     Route: 048
     Dates: start: 20090614, end: 20090628
  2. AMARYL [Suspect]
     Route: 048
  3. VANCOMYCIN [Concomitant]

REACTIONS (2)
  - AGGRESSION [None]
  - HYPOGLYCAEMIA [None]
